FAERS Safety Report 8028660-7 (Version None)
Quarter: 2012Q1

REPORT INFORMATION
  Report Type: 
  Country: None (occurrence: None)
  Receive Date: 20120106
  Receipt Date: 20111229
  Transmission Date: 20120608
  Serious: Yes (Hospitalization, Other)
  Sender: FDA-Public Use
  Company Number: US-ACTELION-A-US2011-50777

PATIENT

DRUGS (2)
  1. ISOSORBIDE DINITRATE [Concomitant]
  2. TRACLEER [Suspect]
     Indication: PULMONARY ARTERIAL HYPERTENSION
     Dosage: UNK
     Route: 048
     Dates: start: 20100607

REACTIONS (11)
  - MOVEMENT DISORDER [None]
  - MALAISE [None]
  - SWELLING [None]
  - DYSPNOEA [None]
  - ATRIAL FIBRILLATION [None]
  - SINUS DISORDER [None]
  - FATIGUE [None]
  - GENERALISED OEDEMA [None]
  - FALL [None]
  - LIMB INJURY [None]
  - CONDITION AGGRAVATED [None]
